FAERS Safety Report 15051545 (Version 2)
Quarter: 2018Q3

REPORT INFORMATION
  Report Type: Report from Study
  Country: US (occurrence: US)
  Receive Date: 20180622
  Receipt Date: 20180731
  Transmission Date: 20181010
  Serious: Yes (Death, Hospitalization, Other)
  Sender: FDA-Public Use
  Company Number: US-JNJFOC-20180324728

PATIENT
  Age: 90 Year
  Sex: Female

DRUGS (4)
  1. IMBRUVICA [Suspect]
     Active Substance: IBRUTINIB
     Indication: CHRONIC LYMPHOCYTIC LEUKAEMIA
     Route: 048
     Dates: start: 201710
  2. VANCOMYCIN [Concomitant]
     Active Substance: VANCOMYCIN
  3. ENSURE [Concomitant]
     Active Substance: AMINO ACIDS\DEXTROSE\ELECTROLYTES NOS\SOYBEAN OIL\VITAMINS
  4. IMBRUVICA [Suspect]
     Active Substance: IBRUTINIB
     Indication: CHRONIC LYMPHOCYTIC LEUKAEMIA
     Route: 048
     Dates: start: 20171111, end: 20180406

REACTIONS (8)
  - Pleural effusion [Not Recovered/Not Resolved]
  - Malignant pleural effusion [Fatal]
  - Pneumothorax [Not Recovered/Not Resolved]
  - Pneumonia [Unknown]
  - Influenza [Not Recovered/Not Resolved]
  - Cardiac septal hypertrophy [Unknown]
  - Clostridium difficile colitis [Not Recovered/Not Resolved]
  - Immunodeficiency [Unknown]

NARRATIVE: CASE EVENT DATE: 201710
